FAERS Safety Report 5403975-7 (Version None)
Quarter: 2007Q3

REPORT INFORMATION
  Report Type: 
  Country: None (occurrence: None)
  Receive Date: 20070802
  Receipt Date: 20070725
  Transmission Date: 20080115
  Serious: Yes (Hospitalization)
  Sender: FDA-Public Use
  Company Number: B0465829A

PATIENT
  Age: 54 Year
  Sex: Female

DRUGS (6)
  1. PAROXETINE HCL [Suspect]
     Indication: ANXIETY DISORDER
     Route: 048
     Dates: start: 20060925, end: 20061212
  2. DIPRIVAN [Suspect]
     Dates: start: 20061212, end: 20061212
  3. RAPIFEN [Suspect]
     Dates: start: 20061212, end: 20061212
  4. ENTOCORT EC [Suspect]
  5. LEXOMIL [Concomitant]
  6. IMOVANE [Concomitant]

REACTIONS (12)
  - ALOPECIA UNIVERSALIS [None]
  - ANGIOEDEMA [None]
  - COLITIS [None]
  - DIARRHOEA [None]
  - DRY SKIN [None]
  - HYPERKERATOSIS [None]
  - ICHTHYOSIS [None]
  - MYCOSIS FUNGOIDES [None]
  - ONYCHOMADESIS [None]
  - PALMAR ERYTHEMA [None]
  - RASH GENERALISED [None]
  - SKIN EXFOLIATION [None]
